FAERS Safety Report 10463752 (Version 3)
Quarter: 2014Q4

REPORT INFORMATION
  Report Type: Spontaneous
  Country: JP (occurrence: JP)
  Receive Date: 20140919
  Receipt Date: 20141203
  Transmission Date: 20150528
  Serious: Yes (Hospitalization, Disabling)
  Sender: FDA-Public Use
  Company Number: JP-ROCHE-1464320

PATIENT
  Age: 74 Year
  Sex: Female
  Weight: 67 kg

DRUGS (11)
  1. XOLAIR [Suspect]
     Active Substance: OMALIZUMAB
     Route: 058
     Dates: start: 20140804, end: 20140804
  2. XOLAIR [Suspect]
     Active Substance: OMALIZUMAB
     Indication: ASTHMA
     Route: 058
     Dates: start: 20140707
  3. ADOAIR [Concomitant]
     Active Substance: FLUTICASONE PROPIONATE\SALMETEROL XINAFOATE
     Route: 065
     Dates: start: 20081006
  4. MONTELUKAST [Concomitant]
     Active Substance: MONTELUKAST SODIUM
     Route: 065
     Dates: start: 20021016
  5. NITRODERM [Concomitant]
     Active Substance: NITROGLYCERIN
     Route: 065
     Dates: start: 20050830
  6. THEOLONG [Concomitant]
     Active Substance: THEOPHYLLINE ANHYDROUS
     Route: 065
     Dates: start: 20021016
  7. PREDONINE [Concomitant]
     Active Substance: PREDNISOLONE\PREDNISOLONE ACETATE\PREDNISOLONE SODIUM SUCCINATE
  8. DIOVAN [Concomitant]
     Active Substance: VALSARTAN
  9. TAKEPRON [Concomitant]
     Active Substance: LANSOPRAZOLE
     Route: 065
     Dates: start: 20060829
  10. MUCODYNE [Concomitant]
     Active Substance: CARBOCYSTEINE
  11. DISOPYRAMIDE [Concomitant]
     Active Substance: DISOPYRAMIDE
     Route: 065
     Dates: start: 20050830

REACTIONS (1)
  - Cerebral infarction [Recovered/Resolved with Sequelae]

NARRATIVE: CASE EVENT DATE: 20140812
